FAERS Safety Report 24149245 (Version 2)
Quarter: 2024Q3

REPORT INFORMATION
  Report Type: Report from Study
  Country: CA (occurrence: CA)
  Receive Date: 20240729
  Receipt Date: 20240731
  Transmission Date: 20241017
  Serious: Yes (Hospitalization, Other)
  Sender: ABBVIE
  Company Number: CA-ABBVIE-5853740

PATIENT
  Age: 27 Year
  Sex: Male

DRUGS (3)
  1. RINVOQ [Suspect]
     Active Substance: UPADACITINIB
     Indication: Colitis ulcerative
     Route: 048
     Dates: start: 20240625
  2. MESALAMINE [Concomitant]
     Active Substance: MESALAMINE
     Indication: Product used for unknown indication
  3. INSULIN NOS [Concomitant]
     Active Substance: INSULIN NOS
     Indication: Type 1 diabetes mellitus
     Dosage: INFUSION
     Route: 042

REACTIONS (8)
  - Colitis ulcerative [Unknown]
  - Malaise [Unknown]
  - Lower gastrointestinal haemorrhage [Unknown]
  - Night sweats [Unknown]
  - Diabetic ketoacidosis [Unknown]
  - Diabetes mellitus [Unknown]
  - Gastrointestinal scarring [Unknown]
  - Unevaluable event [Unknown]

NARRATIVE: CASE EVENT DATE: 20240101
